FAERS Safety Report 5718999-X (Version None)
Quarter: 2008Q2

REPORT INFORMATION
  Report Type: 
  Country: None (occurrence: None)
  Receive Date: 20080425
  Receipt Date: 20080418
  Transmission Date: 20081010
  Serious: Yes (Other)
  Sender: FDA-Public Use
  Company Number: PHEH2008US02449

PATIENT
  Sex: Female

DRUGS (2)
  1. GENTEAL GEL (NVO) [Suspect]
     Dosage: UNK, UNK
  2. GENTEAL MODERATE LUBRICANT EYE DROPS (NVO) [Suspect]
     Dosage: UNK, UNK
     Dates: start: 20070101

REACTIONS (2)
  - EYE INFECTION [None]
  - INTRAOCULAR PRESSURE INCREASED [None]
